FAERS Safety Report 5477393-X (Version None)
Quarter: 2007Q4

REPORT INFORMATION
  Report Type: 
  Country: None (occurrence: None)
  Receive Date: 20071004
  Receipt Date: 20070918
  Transmission Date: 20080405
  Serious: Yes (Other)
  Sender: FDA-Public Use
  Company Number: US-PFIZER INC-2007062060

PATIENT
  Sex: Male

DRUGS (1)
  1. GEODON [Suspect]
     Indication: SCHIZOAFFECTIVE DISORDER

REACTIONS (3)
  - DEPRESSIVE SYMPTOM [None]
  - PSYCHOTIC DISORDER [None]
  - SCHIZOAFFECTIVE DISORDER [None]
